FAERS Safety Report 5385162-4 (Version None)
Quarter: 2007Q3

REPORT INFORMATION
  Report Type: 
  Country: None (occurrence: None)
  Receive Date: 20070712
  Receipt Date: 20070709
  Transmission Date: 20080115
  Serious: Yes (Other)
  Sender: FDA-Public Use
  Company Number: HQWYE009211JUL07

PATIENT
  Age: 88 Year
  Sex: Female
  Weight: 61.29 kg

DRUGS (3)
  1. ADVIL LIQUI-GELS [Suspect]
     Indication: ARTHRALGIA
     Route: 048
     Dates: start: 20070707, end: 20070708
  2. DIGITALIS TAB [Concomitant]
     Dosage: UNKNOWN
     Route: 048
  3. COUMADIN [Concomitant]
     Dosage: UNKNOWN
     Route: 048

REACTIONS (2)
  - CEREBROVASCULAR ACCIDENT [None]
  - TREMOR [None]
